FAERS Safety Report 25554226 (Version 2)
Quarter: 2025Q3

REPORT INFORMATION
  Report Type: Spontaneous
  Country: US (occurrence: US)
  Receive Date: 20250715
  Receipt Date: 20250716
  Transmission Date: 20251021
  Serious: Yes (Hospitalization, Other)
  Sender: PFIZER
  Company Number: US-PFIZER INC-202500142234

PATIENT
  Age: 89 Year
  Sex: Female
  Weight: 71.67 kg

DRUGS (1)
  1. VYNDAMAX [Suspect]
     Active Substance: TAFAMIDIS
     Indication: Amyloidosis
     Dosage: 61MG, 1 CAPSULE BY MOUTH DAILY
     Route: 048

REACTIONS (2)
  - Pneumonia [Unknown]
  - Dysphonia [Unknown]
